FAERS Safety Report 21133862 (Version 2)
Quarter: 2023Q2

REPORT INFORMATION
  Report Type: Report from Study
  Country: DE (occurrence: DE)
  Receive Date: 20220726
  Receipt Date: 20230630
  Transmission Date: 20230722
  Serious: Yes (Hospitalization, Other)
  Sender: FDA-Public Use
  Company Number: DE-NOVARTISPH-NVSC2022DE167448

PATIENT
  Age: 58 Year
  Sex: Male
  Weight: 113 kg

DRUGS (1)
  1. COSENTYX [Suspect]
     Active Substance: SECUKINUMAB
     Indication: Psoriasis
     Dosage: 300 MG (2X150 MG)
     Route: 058
     Dates: start: 20210530

REACTIONS (6)
  - Fistula [Recovered/Resolved]
  - Post procedural infection [Recovered/Resolved]
  - Abscess [Recovered/Resolved]
  - Bursitis infective [Recovered/Resolved]
  - Blister infected [Recovered/Resolved]
  - Bursitis [Recovered/Resolved]

NARRATIVE: CASE EVENT DATE: 20210726
